FAERS Safety Report 10048943 (Version 2)
Quarter: 2014Q1

REPORT INFORMATION
  Report Type: Spontaneous
  Country: CA (occurrence: CA)
  Receive Date: 20140331
  Receipt Date: 20140331
  Transmission Date: 20141002
  Serious: Yes (Hospitalization, Other)
  Sender: FDA-Public Use
  Company Number: CA-009507513-1402CAN010846

PATIENT
  Age: 62 Year
  Sex: Female
  Weight: 62 kg

DRUGS (17)
  1. INTRON A [Suspect]
     Indication: HEPATITIS C
     Dosage: 1.5 TO 3 MILLION UNIT, TIW
     Route: 065
     Dates: start: 20010115, end: 20011216
  2. RIBAVIRIN [Suspect]
     Indication: HEPATITIS C
     Dosage: 1200 MG, QD
     Route: 065
     Dates: start: 20010115, end: 20011216
  3. RIBAVIRIN [Suspect]
     Dosage: 1000 MG, QD
     Route: 048
     Dates: start: 20030321, end: 20030904
  4. RIBAVIRIN [Suspect]
     Dosage: 1200 MG, QD
     Route: 048
     Dates: start: 20061110
  5. UNITRON PEG [Suspect]
     Indication: HEPATITIS C
     Dosage: 120 MICROGRAM, QW
     Route: 065
     Dates: start: 20030321, end: 20030904
  6. UNITRON PEG [Suspect]
     Dosage: 100 MICROGRAM, QW
     Dates: start: 20061110
  7. INTERFERON ALFA-2A [Suspect]
     Indication: HEPATITIS C
     Dosage: 1.5 MU TO 3 MU TIW
     Route: 065
     Dates: start: 20010115, end: 20011216
  8. ATORVASTATIN [Concomitant]
     Dosage: 20 MG, OD
     Route: 065
     Dates: start: 20061110
  9. THYROID [Concomitant]
     Dosage: 0.088 MG, OD
     Route: 065
  10. NOVOLIN GE [Concomitant]
     Dosage: 40/60
     Route: 065
  11. HUMULIN R [Concomitant]
     Route: 065
  12. LACTULOSE [Concomitant]
     Dosage: 30 CC BID
     Route: 065
  13. SILDENAFIL CITRATE [Concomitant]
     Dosage: 20 MG, TID
     Route: 065
  14. FUROSEMIDE [Concomitant]
     Dosage: 40 MG, QD
     Route: 048
  15. SPIRONOLACTONE [Concomitant]
     Dosage: 100 MG, QD
     Route: 065
  16. FENTANYL [Concomitant]
     Dosage: 25 MCG/HR
     Route: 065
  17. DILAUDID [Concomitant]
     Dosage: 1 MG, PRN
     Route: 065

REACTIONS (38)
  - Hepatic failure [Unknown]
  - Peritonitis bacterial [Unknown]
  - Gastrooesophageal reflux disease [Unknown]
  - Female sterilisation [Unknown]
  - Osteoarthritis [Unknown]
  - Joint swelling [Unknown]
  - Hepatic cirrhosis [Unknown]
  - Portopulmonary hypertension [Unknown]
  - Right ventricular failure [Unknown]
  - Hyperglycaemia [Unknown]
  - Neutropenia [Unknown]
  - Abdominal pain lower [Unknown]
  - Gingival bleeding [Unknown]
  - Splenomegaly [Unknown]
  - Rash [Unknown]
  - Hypothyroidism [Unknown]
  - Diabetes mellitus [Unknown]
  - Drug ineffective [Unknown]
  - Aspartate aminotransferase abnormal [Unknown]
  - Aspartate aminotransferase abnormal [Unknown]
  - Aspartate aminotransferase abnormal [Unknown]
  - Blood alkaline phosphatase abnormal [Unknown]
  - Blood bilirubin abnormal [Unknown]
  - Blood bilirubin abnormal [Unknown]
  - Blood bilirubin abnormal [Unknown]
  - Blood albumin abnormal [Unknown]
  - Blood albumin abnormal [Unknown]
  - Blood albumin abnormal [Unknown]
  - International normalised ratio abnormal [Unknown]
  - International normalised ratio abnormal [Unknown]
  - International normalised ratio abnormal [Unknown]
  - Platelet disorder [Unknown]
  - Platelet disorder [Unknown]
  - Platelet disorder [Unknown]
  - Fluid overload [Unknown]
  - Alanine aminotransferase increased [Unknown]
  - Hepatic congestion [Unknown]
  - Hepatitis C [Unknown]
